FAERS Safety Report 21750812 (Version 1)
Quarter: 2022Q4

REPORT INFORMATION
  Report Type: Report from Study
  Country: US (occurrence: US)
  Receive Date: 20221219
  Receipt Date: 20221219
  Transmission Date: 20230112
  Serious: No
  Sender: FDA-Public Use
  Company Number: US-ABBVIE-4195010

PATIENT
  Sex: Female

DRUGS (4)
  1. HUMIRA [Suspect]
     Active Substance: ADALIMUMAB
     Indication: Product used for unknown indication
     Dosage: CITRATE FREE
     Route: 058
  2. COVID-19 VACCINE NOS [Suspect]
     Active Substance: COVID-19 VACCINE NOS
     Indication: COVID-19 immunisation
     Dosage: COVID BOOSTER
     Route: 030
  3. HUMAN HEPATITIS B VIRUS IMMUNE GLOBULIN [Suspect]
     Active Substance: HUMAN HEPATITIS B VIRUS IMMUNE GLOBULIN
     Indication: Hepatitis B
     Dosage: HEPATITIS B BOOSTER
     Route: 030
  4. BENADRYL [Suspect]
     Active Substance: DIPHENHYDRAMINE HYDROCHLORIDE
     Indication: Injection site reaction

REACTIONS (4)
  - Injection site erythema [Not Recovered/Not Resolved]
  - Injection site pruritus [Not Recovered/Not Resolved]
  - Injection site swelling [Not Recovered/Not Resolved]
  - Somnolence [Unknown]
